FAERS Safety Report 10272381 (Version 1)
Quarter: 2014Q1

REPORT INFORMATION
  Report Type: Spontaneous
  Country: US (occurrence: None)
  Receive Date: 20140306
  Receipt Date: 20140306
  Transmission Date: 20141002
  Serious: Yes (Other)
  Sender: FDA-Public Use
  Company Number: 163-21880-13044252

PATIENT
  Age: 76 Year
  Sex: Female
  Weight: 53.98 kg

DRUGS (5)
  1. REVLIMID [Suspect]
     Indication: PLASMA CELL MYELOMA
     Route: 048
     Dates: start: 20130403, end: 20130421
  2. CYMBALTA [Concomitant]
  3. DEXAMETHASONE (DEXAMETHASONE) [Concomitant]
  4. NORCO (VICODIN) (TABLETS) [Concomitant]
  5. VITAMIN D (ERGOCALCIFEROL) [Concomitant]

REACTIONS (4)
  - Tinnitus [None]
  - Gait disturbance [None]
  - Dizziness [None]
  - Drug intolerance [None]
